FAERS Safety Report 9696377 (Version 1)
Quarter: 2013Q4

REPORT INFORMATION
  Report Type: Spontaneous
  Country: DK (occurrence: ES)
  Receive Date: 20131119
  Receipt Date: 20131119
  Transmission Date: 20140711
  Serious: Yes (Life-Threatening)
  Sender: FDA-Public Use
  Company Number: ES-FRI-1000051462

PATIENT
  Age: 84 Year
  Sex: Female

DRUGS (4)
  1. ESCITALOPRAM [Suspect]
     Route: 048
     Dates: start: 201111
  2. EBASTINE [Suspect]
     Route: 048
     Dates: start: 201204
  3. DEPRAX [Suspect]
     Dates: start: 201204
  4. ATARAX [Suspect]
     Route: 048
     Dates: start: 201206

REACTIONS (3)
  - Cardio-respiratory arrest [Recovered/Resolved]
  - Ventricular tachycardia [Recovered/Resolved]
  - Electrocardiogram QT prolonged [Recovered/Resolved]
